FAERS Safety Report 4831728-7 (Version None)
Quarter: 2005Q4

REPORT INFORMATION
  Report Type: 
  Country: None (occurrence: None)
  Receive Date: 20051118
  Receipt Date: 20051107
  Transmission Date: 20060501
  Serious: Yes (Hospitalization, Disabling, Other)
  Sender: FDA-Public Use
  Company Number: ES-MERCK-0511ESP00013

PATIENT
  Age: 54 Year
  Sex: Female

DRUGS (2)
  1. VIOXX [Suspect]
     Indication: ARTHRALGIA
     Route: 065
     Dates: start: 20021201
  2. VIOXX [Suspect]
     Route: 065
     Dates: start: 20010101, end: 20010101

REACTIONS (7)
  - BRONCHOSPASM [None]
  - COMA [None]
  - ISCHAEMIC CEREBRAL INFARCTION [None]
  - LOCKED-IN SYNDROME [None]
  - PNEUMONIA [None]
  - PYREXIA [None]
  - VERTEBRAL ARTERY STENOSIS [None]
